FAERS Safety Report 15848570 (Version 2)
Quarter: 2019Q2

REPORT INFORMATION
  Report Type: Spontaneous
  Country: US (occurrence: US)
  Receive Date: 20190121
  Receipt Date: 20190404
  Transmission Date: 20190711
  Serious: Yes (Other)
  Sender: FDA-Public Use
  Company Number: US-009507513-1901USA005559

PATIENT
  Age: 83 Year
  Sex: Male

DRUGS (1)
  1. KEYTRUDA [Suspect]
     Active Substance: PEMBROLIZUMAB
     Indication: METASTASES TO LUNG
     Dosage: 2 MILLIGRAM/KILOGRAM, OVER 30 MINUTES, Q3W
     Route: 042

REACTIONS (1)
  - Polymyalgia rheumatica [Recovered/Resolved]
